FAERS Safety Report 10510606 (Version 1)
Quarter: 2014Q4

REPORT INFORMATION
  Report Type: Spontaneous
  Country: TR (occurrence: None)
  Receive Date: 20141008
  Receipt Date: 20141008
  Transmission Date: 20150528
  Serious: Yes (Death, Hospitalization)
  Sender: FDA-Public Use
  Company Number: 2014SCAL000150

PATIENT
  Age: 52 Year
  Sex: Female

DRUGS (5)
  1. CHLORPROMAZINE [Concomitant]
     Active Substance: CHLORPROMAZINE
  2. DIURETICS [Concomitant]
     Active Substance: UNSPECIFIED INGREDIENT
  3. LITHIUM CARBONATE (LITHIUM CARBONATE) UNKNOWN [Suspect]
     Active Substance: LITHIUM CARBONATE
     Indication: BIPOLAR DISORDER
     Dosage: EVERY ALTERNATE DAY
  4. INSULIN GLARGINE [Concomitant]
     Active Substance: INSULIN GLARGINE
  5. IRBESARTAN. [Concomitant]
     Active Substance: IRBESARTAN

REACTIONS (28)
  - Tachycardia [None]
  - Irritability [None]
  - Lethargy [None]
  - Hyporeflexia [None]
  - Creutzfeldt-Jakob disease [None]
  - Respiratory failure [None]
  - Supraventricular tachycardia [None]
  - Hypotonia [None]
  - Generalised tonic-clonic seizure [None]
  - Vomiting [None]
  - Diarrhoea [None]
  - Blood glucose increased [None]
  - Insomnia [None]
  - Pyrexia [None]
  - Toxicity to various agents [None]
  - Pneumonia aspiration [None]
  - Gait disturbance [None]
  - Coma [None]
  - Blood urea increased [None]
  - Blood creatinine increased [None]
  - Haemodialysis [None]
  - Expired product administered [None]
  - Decreased appetite [None]
  - Speech disorder [None]
  - Acute respiratory distress syndrome [None]
  - Hypertension [None]
  - Nausea [None]
  - Hyperthyroidism [None]
